FAERS Safety Report 5344313-8 (Version None)
Quarter: 2007Q2

REPORT INFORMATION
  Report Type: 
  Country: None (occurrence: None)
  Receive Date: 20070604
  Receipt Date: 20070522
  Transmission Date: 20071010
  Serious: Yes (Other)
  Sender: FDA-Public Use
  Company Number: GB-ASTRAZENECA-2007GB01081

PATIENT
  Age: 72 Year
  Sex: Male

DRUGS (1)
  1. PULMICORT [Suspect]
     Indication: RHINITIS
     Route: 055

REACTIONS (6)
  - BLOOD CHOLESTEROL INCREASED [None]
  - INCREASED APPETITE [None]
  - PROSTATIC PAIN [None]
  - RETINAL DETACHMENT [None]
  - THROAT IRRITATION [None]
  - WEIGHT INCREASED [None]
